FAERS Safety Report 14769608 (Version 2)
Quarter: 2018Q4

REPORT INFORMATION
  Report Type: Spontaneous
  Country: US (occurrence: US)
  Receive Date: 20180417
  Receipt Date: 20181115
  Transmission Date: 20190204
  Serious: Yes (Death, Other)
  Sender: FDA-Public Use
  Company Number: US-ASTRAZENECA-2018SE45773

PATIENT
  Age: 61 Year
  Sex: Male
  Weight: 54.4 kg

DRUGS (26)
  1. MILK OF MAGNESIA [Concomitant]
     Active Substance: MAGNESIUM HYDROXIDE
     Indication: ANTACID THERAPY
  2. HYDROCODONE-ACETAMINOPHEN [Concomitant]
     Active Substance: ACETAMINOPHEN\HYDROCODONE
     Route: 048
  3. METOPROLOL. [Concomitant]
     Active Substance: METOPROLOL
     Route: 048
  4. TIZANIDINE. [Concomitant]
     Active Substance: TIZANIDINE
     Route: 048
  5. TERBINAFINE HYDROCHLORIDE. [Concomitant]
     Active Substance: TERBINAFINE HYDROCHLORIDE
     Route: 065
  6. NEXIUM [Suspect]
     Active Substance: ESOMEPRAZOLE MAGNESIUM
     Route: 048
     Dates: start: 2009, end: 2017
  7. NEXIUM [Suspect]
     Active Substance: ESOMEPRAZOLE MAGNESIUM
     Route: 048
     Dates: start: 20141104, end: 2017
  8. PANTOPRAZOLE [Suspect]
     Active Substance: PANTOPRAZOLE
     Route: 065
  9. NORCO [Concomitant]
     Active Substance: ACETAMINOPHEN\HYDROCODONE BITARTRATE
  10. ASPIRINE [Concomitant]
     Active Substance: ASPIRIN
     Route: 048
  11. HUMALOG [Concomitant]
     Active Substance: INSULIN LISPRO
     Route: 065
  12. VITAMIN D3 [Concomitant]
     Active Substance: CHOLECALCIFEROL
  13. CRESTOR [Concomitant]
     Active Substance: ROSUVASTATIN CALCIUM
     Route: 048
  14. FENTANYL. [Concomitant]
     Active Substance: FENTANYL
  15. PLAQUENIL [Concomitant]
     Active Substance: HYDROXYCHLOROQUINE SULFATE
  16. AVAPRO [Concomitant]
     Active Substance: IRBESARTAN
     Route: 048
     Dates: start: 20141104
  17. LASIX [Concomitant]
     Active Substance: FUROSEMIDE
     Route: 048
     Dates: start: 20141104
  18. PREDNISONE. [Concomitant]
     Active Substance: PREDNISONE
     Route: 048
     Dates: start: 20141104
  19. VIAGRA [Concomitant]
     Active Substance: SILDENAFIL CITRATE
     Route: 048
  20. FUROSEMIDE. [Concomitant]
     Active Substance: FUROSEMIDE
     Route: 048
  21. WELCHOL [Concomitant]
     Active Substance: COLESEVELAM HYDROCHLORIDE
     Route: 048
  22. ROSUVASTATIN. [Concomitant]
     Active Substance: ROSUVASTATIN
  23. ZETIA [Concomitant]
     Active Substance: EZETIMIBE
     Route: 048
     Dates: start: 20141104
  24. QUINAPRIL. [Concomitant]
     Active Substance: QUINAPRIL
     Route: 048
     Dates: start: 20141104
  25. METOPROLOL. [Concomitant]
     Active Substance: METOPROLOL
     Route: 048
  26. GABAPENTIN. [Concomitant]
     Active Substance: GABAPENTIN
     Route: 048

REACTIONS (4)
  - End stage renal disease [Fatal]
  - Azotaemia [Fatal]
  - Renal failure [Unknown]
  - Chronic kidney disease [Unknown]

NARRATIVE: CASE EVENT DATE: 2014
